FAERS Safety Report 4482403-2 (Version None)
Quarter: 2004Q4

REPORT INFORMATION
  Report Type: 
  Country: None (occurrence: None)
  Receive Date: 20041022
  Receipt Date: 20040511
  Transmission Date: 20050328
  Serious: No
  Sender: FDA-Public Use
  Company Number: US-BRISTOL-MYERS SQUIBB COMPANY-12583977

PATIENT
  Age: 89 Year
  Sex: Female
  Weight: 61 kg

DRUGS (9)
  1. BUSPAR [Suspect]
     Indication: FEAR
     Dosage: STARTED AT 5 MG DAILY
     Route: 048
     Dates: start: 20040301
  2. BUSPAR [Suspect]
     Indication: ANXIETY
     Dosage: STARTED AT 5 MG DAILY
     Route: 048
     Dates: start: 20040301
  3. BUSPAR [Suspect]
     Indication: CRYING
     Dosage: STARTED AT 5 MG DAILY
     Route: 048
     Dates: start: 20040301
  4. ZYPREXA [Concomitant]
  5. TENORETIC 100 [Concomitant]
  6. ISORDIL [Concomitant]
  7. VITAMIN C [Concomitant]
  8. POTASSIUM CHLORIDE [Concomitant]
  9. ATROVENT [Concomitant]
     Route: 045

REACTIONS (4)
  - AGGRESSION [None]
  - DECREASED APPETITE [None]
  - DYSTONIA [None]
  - SOMNOLENCE [None]
